FAERS Safety Report 7422749-9 (Version None)
Quarter: 2011Q2

REPORT INFORMATION
  Report Type: 
  Country: None (occurrence: None)
  Receive Date: 20110419
  Receipt Date: 20110411
  Transmission Date: 20111010
  Serious: Yes (Other)
  Sender: FDA-Public Use
  Company Number: CA-TEVA-277107USA

PATIENT
  Age: 63 Year
  Sex: Female
  Weight: 90.8 kg

DRUGS (1)
  1. CIPROFLOXACIN HCL [Suspect]

REACTIONS (4)
  - TENDON DISORDER [None]
  - BRADYPHRENIA [None]
  - CHEST PAIN [None]
  - FEELING ABNORMAL [None]
